FAERS Safety Report 19008407 (Version 1)
Quarter: 2021Q1

REPORT INFORMATION
  Report Type: Report from Study
  Country: BR (occurrence: BR)
  Receive Date: 20210315
  Receipt Date: 20210315
  Transmission Date: 20210420
  Serious: Yes (Hospitalization)
  Sender: FDA-Public Use
  Company Number: BR-SA-2021SA083042

PATIENT
  Age: 68 Year
  Sex: Female
  Weight: 69 kg

DRUGS (10)
  1. ISATUXIMAB [Suspect]
     Active Substance: ISATUXIMAB
     Dosage: 20 MG/KG, QOW
     Route: 042
     Dates: start: 20171204, end: 20171204
  2. SLOW?K [Concomitant]
     Active Substance: POTASSIUM CHLORIDE
     Dosage: UNK
     Route: 048
     Dates: start: 20180110
  3. ISATUXIMAB [Suspect]
     Active Substance: ISATUXIMAB
     Indication: HAEMATOLOGICAL MALIGNANCY
     Dosage: 20 MG/KG, QOW
     Route: 042
     Dates: start: 20210127, end: 20210127
  4. INSULIN NPH [INSULIN ISOPHANE BOVINE] [Concomitant]
     Active Substance: INSULIN BEEF
     Dosage: 16 UNIT
     Route: 058
     Dates: start: 20180312
  5. DIAMICRON [Concomitant]
     Active Substance: GLICLAZIDE
     Dosage: UNK
     Route: 048
     Dates: start: 201601
  6. CLORETO DE MAGNESIO [Concomitant]
     Dosage: UNK
     Route: 048
     Dates: start: 20180104
  7. BACTRIM [Concomitant]
     Active Substance: SULFAMETHOXAZOLE\TRIMETHOPRIM
     Indication: PROPHYLAXIS
     Dosage: UNK
     Route: 048
     Dates: start: 20180403
  8. ZOMETA [Concomitant]
     Active Substance: ZOLEDRONIC ACID
     Dosage: ROUTE : INTRAVENOUS ? PERIPHERAL
     Route: 042
     Dates: start: 2016
  9. NEOSALDINA [CAFFEINE;ISOMETHEPTENE;METAMIZOLE SODIUM] [Concomitant]
     Active Substance: CAFFEINE\ISOMETHEPTENE\METHIMAZOLE
     Dosage: 1 TABLET
     Route: 048
     Dates: start: 20180105
  10. MAGNESIUM + B6 [Concomitant]
     Indication: PROPHYLAXIS
     Dosage: 1 TABLET
     Route: 048
     Dates: start: 20180306

REACTIONS (1)
  - Electrolyte imbalance [Recovered/Resolved]

NARRATIVE: CASE EVENT DATE: 20210226
